FAERS Safety Report 4643438-X (Version None)
Quarter: 2005Q2

REPORT INFORMATION
  Report Type: 
  Country: None (occurrence: None)
  Receive Date: 20050420
  Receipt Date: 20050420
  Transmission Date: 20051028
  Serious: Yes (Life-Threatening, Hospitalization)
  Sender: FDA-Public Use
  Company Number: None

PATIENT
  Age: 60 Year
  Sex: Male
  Weight: 80.0145 kg

DRUGS (4)
  1. EPINEPHRINE [Suspect]
     Dosage: 3 MCG UNK IV
     Route: 042
     Dates: start: 20050315
  2. CLEVELOX (CLEVIDIPINE) [Suspect]
     Dosage: 0.42 MG UNK IV
     Route: 042
     Dates: start: 20050315, end: 20050315
  3. NICARDIPINE HCL [Concomitant]
  4. INSULIN [Concomitant]

REACTIONS (12)
  - BLOOD CREATINE PHOSPHOKINASE INCREASED [None]
  - BLOOD CREATINE PHOSPHOKINASE MB INCREASED [None]
  - BLOOD GLUCOSE INCREASED [None]
  - CARDIO-RESPIRATORY ARREST [None]
  - HAEMATOCRIT DECREASED [None]
  - HAEMOGLOBIN DECREASED [None]
  - PERICARDITIS [None]
  - PLATELET COUNT DECREASED [None]
  - PO2 DECREASED [None]
  - TROPONIN I INCREASED [None]
  - VENTRICULAR FIBRILLATION [None]
  - WHITE BLOOD CELL COUNT INCREASED [None]
